FAERS Safety Report 21515317 (Version 1)
Quarter: 2022Q4

REPORT INFORMATION
  Report Type: Report from Study
  Country: US (occurrence: US)
  Receive Date: 20221027
  Receipt Date: 20221027
  Transmission Date: 20230113
  Serious: No
  Sender: FDA-Public Use
  Company Number: US-ABBVIE-4173324

PATIENT
  Age: 76 Year
  Sex: Female

DRUGS (3)
  1. IMBRUVICA [Suspect]
     Active Substance: IBRUTINIB
     Indication: Product used for unknown indication
     Route: 048
  2. COVID-19 vaccine [Concomitant]
     Indication: COVID-19 immunisation
     Dosage: BOOSTER DOSE/ONE IN ONCE
     Route: 030
     Dates: start: 20221018, end: 20221018
  3. INFLUENZA VIRUS VACCINE [Concomitant]
     Active Substance: INFLUENZA VIRUS VACCINE
     Indication: Product used for unknown indication
     Dosage: ONE IN ONCE
     Route: 030
     Dates: start: 20221018, end: 20221018

REACTIONS (2)
  - Feeling hot [Recovered/Resolved]
  - Nausea [Recovered/Resolved]

NARRATIVE: CASE EVENT DATE: 20221019
